FAERS Safety Report 25532265 (Version 1)
Quarter: 2025Q3

REPORT INFORMATION
  Report Type: Spontaneous
  Country: US (occurrence: US)
  Receive Date: 20250709
  Receipt Date: 20250709
  Transmission Date: 20251021
  Serious: Yes (Other)
  Sender: NOVO NORDISK
  Company Number: US-NOVOPROD-1471503

PATIENT
  Sex: Female

DRUGS (2)
  1. OZEMPIC [Suspect]
     Active Substance: SEMAGLUTIDE
     Indication: Obesity
     Dates: start: 202209, end: 202309
  2. NOVOLOG [Concomitant]
     Active Substance: INSULIN ASPART
     Indication: Type 1 diabetes mellitus

REACTIONS (7)
  - Mental disorder [Not Recovered/Not Resolved]
  - Anxiety [Not Recovered/Not Resolved]
  - Post-traumatic stress disorder [Not Recovered/Not Resolved]
  - Mental disorder [Not Recovered/Not Resolved]
  - Stress [Not Recovered/Not Resolved]
  - Weight increased [Recovered/Resolved]
  - Product use in unapproved indication [Unknown]
